FAERS Safety Report 24455432 (Version 2)
Quarter: 2024Q4

REPORT INFORMATION
  Report Type: Report from Study
  Country: CA (occurrence: CA)
  Receive Date: 20241017
  Receipt Date: 20241018
  Transmission Date: 20250115
  Serious: No
  Sender: ROCHE
  Company Number: CA-ROCHE-3498149

PATIENT
  Sex: Female

DRUGS (20)
  1. RITUXAN [Suspect]
     Active Substance: RITUXIMAB
     Indication: Vasculitis
     Dosage: DRUG DOSE FIRST ADMINISTERED IS 1000 MG MILLIGRAM(S)MORE DOSAGE INFO IS DAY 1, DAY 15
     Route: 041
     Dates: start: 20181220
  2. RITUXAN [Suspect]
     Active Substance: RITUXIMAB
     Indication: Sjogren^s syndrome
  3. ACETAMINOPHEN [Concomitant]
     Active Substance: ACETAMINOPHEN
     Route: 048
     Dates: start: 20181220, end: 20191021
  4. ACETAMINOPHEN [Concomitant]
     Active Substance: ACETAMINOPHEN
     Route: 048
     Dates: start: 20200714
  5. BENADRYL [Concomitant]
     Active Substance: DIPHENHYDRAMINE HYDROCHLORIDE
  6. BILASTINE [Concomitant]
     Active Substance: BILASTINE
  7. CELEBREX [Concomitant]
     Active Substance: CELECOXIB
  8. LINACLOTIDE [Concomitant]
     Active Substance: LINACLOTIDE
  9. CYMBALTA [Concomitant]
     Active Substance: DULOXETINE HYDROCHLORIDE
  10. DILAUDID [Concomitant]
     Active Substance: HYDROMORPHONE HYDROCHLORIDE
  11. DIPHENHYDRAMINE [Concomitant]
     Active Substance: DIPHENHYDRAMINE
     Dates: start: 20181220
  12. GRAVOL [Concomitant]
     Active Substance: DIMENHYDRINATE
  13. METHYLPREDNISOLONE [Concomitant]
     Active Substance: METHYLPREDNISOLONE
     Route: 042
     Dates: start: 20181220
  14. PERCOCET [Concomitant]
     Active Substance: ACETAMINOPHEN\OXYCODONE HYDROCHLORIDE
  15. PLAQUENIL [Concomitant]
     Active Substance: HYDROXYCHLOROQUINE SULFATE
  16. PANTOPRAZOLE MAGNESIUM [Concomitant]
     Active Substance: PANTOPRAZOLE MAGNESIUM
  17. TRIPLEX [ECHINACEA ANGUSTIFOLIA;ECHINACEA PALLIDA;ECHINACEA PURPUREA] [Concomitant]
  18. TYLENOL [Concomitant]
     Active Substance: ACETAMINOPHEN
     Dates: start: 20181220
  19. TYLENOL [Concomitant]
     Active Substance: ACETAMINOPHEN
     Dosage: PEG TUBE
     Dates: start: 20211027
  20. ZOFRAN [Concomitant]
     Active Substance: ONDANSETRON HYDROCHLORIDE

REACTIONS (1)
  - Illness [Unknown]
